FAERS Safety Report 9315278 (Version 1)
Quarter: 2013Q2

REPORT INFORMATION
  Report Type: Other
  Country: GB (occurrence: GB)
  Receive Date: 20130529
  Receipt Date: 20130529
  Transmission Date: 20140414
  Serious: Yes (Hospitalization, Other)
  Sender: FDA-Public Use
  Company Number: GB-WATSON-2013-08983

PATIENT
  Age: 54 Year
  Sex: Male
  Weight: 79 kg

DRUGS (1)
  1. RAMIPRIL (UNKNOWN) [Suspect]
     Indication: HYPERTENSION
     Dosage: 50 MG, QAM
     Route: 065
     Dates: start: 2002

REACTIONS (35)
  - Vision blurred [Recovering/Resolving]
  - Muscle spasms [Recovering/Resolving]
  - Abdominal pain upper [Recovering/Resolving]
  - Influenza [Recovering/Resolving]
  - Hyperacusis [Recovering/Resolving]
  - Headache [Recovering/Resolving]
  - Monoplegia [Recovering/Resolving]
  - Skin discolouration [Recovering/Resolving]
  - Dyskinesia [Recovering/Resolving]
  - Arthritis [Recovering/Resolving]
  - Rheumatic disorder [Recovering/Resolving]
  - Gout [Recovering/Resolving]
  - Pain [Recovering/Resolving]
  - Paraesthesia [Recovering/Resolving]
  - Bruxism [Recovering/Resolving]
  - Aggression [Recovering/Resolving]
  - Nightmare [Recovering/Resolving]
  - Foreign body sensation in eyes [Recovering/Resolving]
  - Arthropathy [Recovering/Resolving]
  - Dysgeusia [Recovering/Resolving]
  - Nausea [Recovering/Resolving]
  - Scab [Recovering/Resolving]
  - Ear pain [Recovering/Resolving]
  - Rhinorrhoea [Recovering/Resolving]
  - Feeling abnormal [Recovering/Resolving]
  - Musculoskeletal stiffness [Recovering/Resolving]
  - Asthma [Recovering/Resolving]
  - Presyncope [Recovering/Resolving]
  - Dysphagia [Recovering/Resolving]
  - Hypokinesia [Recovering/Resolving]
  - Back pain [Recovering/Resolving]
  - Mental disorder [Recovering/Resolving]
  - Vomiting [Recovering/Resolving]
  - Oral discharge [Recovering/Resolving]
  - Blindness transient [Recovering/Resolving]
